FAERS Safety Report 9240136 (Version 1)
Quarter: 2013Q2

REPORT INFORMATION
  Report Type: Spontaneous
  Country: US (occurrence: None)
  Receive Date: 20130417
  Receipt Date: 20130417
  Transmission Date: 20140414
  Serious: Yes (Hospitalization)
  Sender: FDA-Public Use
  Company Number: FDB-2013-010

PATIENT
  Age: 54 Year
  Sex: Male

DRUGS (3)
  1. TECHNETIUM TC-99M MEBROFENIN KIT [Suspect]
     Route: 042
     Dates: start: 20130402
  2. TYLENOL PM [Concomitant]
  3. SNYTROIC [Concomitant]

REACTIONS (2)
  - Palatal oedema [None]
  - Pruritus [None]
